FAERS Safety Report 16080226 (Version 9)
Quarter: 2021Q2

REPORT INFORMATION
  Report Type: Report from Study
  Country: DE (occurrence: DE)
  Receive Date: 20190315
  Receipt Date: 20210416
  Transmission Date: 20210716
  Serious: Yes (Death, Life-Threatening, Hospitalization, Other)
  Sender: FDA-Public Use
  Company Number: PHHY2017DE016651

PATIENT
  Sex: Male
  Weight: 78 kg

DRUGS (3)
  1. PANTOPRAZOLE [Concomitant]
     Active Substance: PANTOPRAZOLE
     Indication: PROPHYLAXIS
     Dosage: 40 MG, QD
     Route: 048
     Dates: start: 20160902
  2. VOTRIENT [Suspect]
     Active Substance: PAZOPANIB HYDROCHLORIDE
     Indication: METASTATIC RENAL CELL CARCINOMA
     Dosage: 800 MG, QD
     Route: 048
     Dates: start: 20161006, end: 20170126
  3. DEXAMETHASONE. [Concomitant]
     Active Substance: DEXAMETHASONE
     Indication: PROPHYLAXIS
     Dosage: 4 MG, TID
     Route: 048
     Dates: start: 20161219, end: 20170126

REACTIONS (20)
  - Cough [Fatal]
  - Metastases to central nervous system [Unknown]
  - Metastases to lung [Unknown]
  - Acute kidney injury [Fatal]
  - Cerebral haemorrhage [Unknown]
  - Ascites [Fatal]
  - Aspergilloma [Fatal]
  - Atelectasis [Fatal]
  - Infection [Fatal]
  - Condition aggravated [Unknown]
  - Pleural effusion [Fatal]
  - Malignant neoplasm progression [Fatal]
  - Partial seizures [Unknown]
  - Dyspnoea [Fatal]
  - Oedema [Not Recovered/Not Resolved]
  - Metastatic renal cell carcinoma [Fatal]
  - Hyperglycaemia [Unknown]
  - Muscle twitching [Unknown]
  - Lymphadenopathy [Fatal]
  - Pneumonia [Unknown]

NARRATIVE: CASE EVENT DATE: 201612
